FAERS Safety Report 8956164 (Version 1)
Quarter: 2012Q4

REPORT INFORMATION
  Report Type: 
  Country: US (occurrence: US)
  Receive Date: 20121210
  Receipt Date: 20121210
  Transmission Date: 20130627
  Serious: Yes (Other)
  Sender: FDA-Public Use
  Company Number: PHEH2012US023927

PATIENT
  Sex: Female

DRUGS (10)
  1. DIOVAN [Suspect]
     Dosage: 1 DF, (320 mg) QD
     Route: 048
  2. VALTURNA [Suspect]
  3. COREG [Concomitant]
  4. HYDROCHLOROTHIAZIDE [Concomitant]
     Dosage: 25 mg, UNK
  5. CRESTOR [Concomitant]
  6. POTASSIUM CHLORIDE [Concomitant]
  7. ASPIRIN [Concomitant]
     Dosage: 81 mg, UNK
  8. CALCIUM [Concomitant]
  9. FISH OIL [Concomitant]
  10. PAROXETINE [Concomitant]

REACTIONS (4)
  - Diabetes mellitus [Unknown]
  - Fall [Unknown]
  - Joint injury [Unknown]
  - Pain in extremity [Unknown]
